FAERS Safety Report 13672697 (Version 3)
Quarter: 2018Q2

REPORT INFORMATION
  Report Type: Spontaneous
  Country: GB (occurrence: GB)
  Receive Date: 20170621
  Receipt Date: 20180425
  Transmission Date: 20180711
  Serious: Yes (Death, Hospitalization)
  Sender: FDA-Public Use
  Company Number: GB-ROCHE-1952889

PATIENT
  Age: 69 Year
  Sex: Male
  Weight: 77.56 kg

DRUGS (2)
  1. CAPECITABINE. [Suspect]
     Active Substance: CAPECITABINE
     Indication: GASTROINTESTINAL CARCINOMA
     Route: 048
     Dates: start: 20170418, end: 20170430
  2. ATORVASTATIN [Concomitant]
     Active Substance: ATORVASTATIN
     Route: 065

REACTIONS (8)
  - Oesophageal ulcer perforation [Not Recovered/Not Resolved]
  - Diarrhoea [Recovered/Resolved]
  - Cardiac arrest [Fatal]
  - Nausea [Recovered/Resolved]
  - Gastrointestinal inflammation [Not Recovered/Not Resolved]
  - Drug prescribing error [Unknown]
  - Renal failure [Not Recovered/Not Resolved]
  - Mouth ulceration [Not Recovered/Not Resolved]

NARRATIVE: CASE EVENT DATE: 20170421
